FAERS Safety Report 24000125 (Version 1)
Quarter: 2024Q2

REPORT INFORMATION
  Report Type: Report from Study
  Country: US (occurrence: US)
  Receive Date: 20240621
  Receipt Date: 20240621
  Transmission Date: 20240716
  Serious: Yes (Other)
  Sender: FDA-Public Use
  Company Number: US-Eisai-EC-2024-168523

PATIENT
  Age: 77 Year
  Sex: Female

DRUGS (6)
  1. LENVIMA [Suspect]
     Active Substance: LENVATINIB
     Indication: Endometrial cancer
     Route: 048
     Dates: start: 20230821, end: 202404
  2. LENVIMA [Suspect]
     Active Substance: LENVATINIB
     Indication: Breast cancer female
  3. KEYTRUDA [Concomitant]
     Active Substance: PEMBROLIZUMAB
     Indication: Endometrial cancer
     Dosage: DOSE AND FREQUENCY UNKNOWN
  4. KEYTRUDA [Concomitant]
     Active Substance: PEMBROLIZUMAB
     Indication: Breast cancer female
  5. MAGNESIUM [Concomitant]
     Active Substance: MAGNESIUM
     Dosage: DOSE AND FREQUENCY UNKNOWN
  6. POTASSIUM [Concomitant]
     Active Substance: POTASSIUM
     Dosage: DOSE AND FREQUENCY UNKNOWN

REACTIONS (1)
  - Gastric ulcer perforation [Unknown]

NARRATIVE: CASE EVENT DATE: 20240401
